FAERS Safety Report 12081541 (Version 2)
Quarter: 2016Q1

REPORT INFORMATION
  Report Type: Report from Study
  Country: JP (occurrence: JP)
  Receive Date: 20160216
  Receipt Date: 20160216
  Transmission Date: 20160526
  Serious: Yes (Hospitalization)
  Sender: FDA-Public Use
  Company Number: JP-BIOGEN-C201402860

PATIENT
  Age: 37 Year
  Sex: Male
  Weight: 56 kg

DRUGS (14)
  1. FINGOLIMOD HYDROCHLORIDE [Concomitant]
     Active Substance: FINGOLIMOD HYDROCHLORIDE
     Indication: MULTIPLE SCLEROSIS
     Route: 048
     Dates: start: 20130108, end: 20140620
  2. TRIAMCINOLONE ACETONIDE. [Concomitant]
     Active Substance: TRIAMCINOLONE ACETONIDE
     Indication: STOMATITIS
     Route: 061
     Dates: start: 20130911
  3. POVIDONE-IODINE. [Concomitant]
     Active Substance: POVIDONE-IODINE
     Indication: PROPHYLAXIS
     Route: 061
     Dates: start: 20131225, end: 20140620
  4. ELDECALCITOL [Concomitant]
     Active Substance: ELDECALCITOL
     Indication: MULTIPLE SCLEROSIS
     Route: 048
     Dates: start: 2012, end: 20140620
  5. BROTIZOLAM [Concomitant]
     Active Substance: BROTIZOLAM
     Indication: INSOMNIA
     Route: 048
     Dates: start: 20140402, end: 20140620
  6. URSODEOXYCHOLIC ACID [Concomitant]
     Active Substance: URSODIOL
     Indication: GAMMA-GLUTAMYLTRANSFERASE INCREASED
  7. SODIUM GUALENATE [Concomitant]
     Active Substance: SODIUM GUALENATE
     Indication: PROPHYLAXIS
     Route: 061
     Dates: start: 20131225, end: 20140620
  8. DEXAMETHASONE DIPROPIONATE [Concomitant]
     Active Substance: DEXAMETHASONE DIPROPIONATE
     Indication: DERMATITIS ATOPIC
     Route: 003
     Dates: start: 20131008
  9. BIIB041 [Suspect]
     Active Substance: DALFAMPRIDINE
     Indication: MULTIPLE SCLEROSIS
     Route: 048
     Dates: start: 20140219, end: 20140620
  10. FINGOLIMOD HYDROCHLORIDE [Concomitant]
     Active Substance: FINGOLIMOD HYDROCHLORIDE
     Indication: MULTIPLE SCLEROSIS
     Route: 048
     Dates: start: 20140812
  11. ELDECALCITOL [Concomitant]
     Active Substance: ELDECALCITOL
     Indication: MULTIPLE SCLEROSIS
     Route: 048
     Dates: start: 20140711
  12. CLOSTRIDIUM BUTYRICUM [Concomitant]
     Active Substance: CLOSTRIDIUM BUTYRICUM SPORES STRAIN M-55
     Indication: DYSCHEZIA
     Route: 048
     Dates: start: 20130220, end: 20140620
  13. URSODEOXYCHOLIC ACID [Concomitant]
     Active Substance: URSODIOL
     Indication: ALANINE AMINOTRANSFERASE INCREASED
     Route: 048
     Dates: start: 20140402, end: 20140620
  14. FELBINAC [Concomitant]
     Active Substance: FELBINAC
     Indication: MULTIPLE SCLEROSIS
     Route: 062
     Dates: start: 2012

REACTIONS (2)
  - Pneumonia aspiration [Recovered/Resolved]
  - Generalised tonic-clonic seizure [Recovered/Resolved]

NARRATIVE: CASE EVENT DATE: 20140620
